FAERS Safety Report 24856099 (Version 2)
Quarter: 2025Q2

REPORT INFORMATION
  Report Type: Spontaneous
  Country: IT (occurrence: IT)
  Receive Date: 20250117
  Receipt Date: 20250415
  Transmission Date: 20250716
  Serious: Yes (Hospitalization)
  Sender: JOHNSON AND JOHNSON
  Company Number: None

PATIENT
  Age: 78 Year
  Sex: Male

DRUGS (11)
  1. RISPERDAL [Interacting]
     Active Substance: RISPERIDONE
     Indication: Psychotic disorder
     Route: 048
     Dates: start: 2024, end: 20250107
  2. RISPERDAL [Interacting]
     Active Substance: RISPERIDONE
  3. RISPERDAL [Interacting]
     Active Substance: RISPERIDONE
  4. RISPERDAL [Interacting]
     Active Substance: RISPERIDONE
  5. RISPERDAL [Interacting]
     Active Substance: RISPERIDONE
  6. RISPERDAL [Interacting]
     Active Substance: RISPERIDONE
  7. AMITRIPTYLINE HYDROCHLORIDE [Suspect]
     Active Substance: AMITRIPTYLINE HYDROCHLORIDE
     Indication: Depression
     Route: 048
     Dates: start: 2024, end: 20250107
  8. EN [Suspect]
     Active Substance: DELORAZEPAM
     Indication: Agitation
     Route: 048
     Dates: start: 2024, end: 20250107
  9. LOPERAMIDE HYDROCHLORIDE [Concomitant]
     Active Substance: LOPERAMIDE HYDROCHLORIDE
     Indication: Diarrhoea
     Route: 048
  10. LYRICA [Concomitant]
     Active Substance: PREGABALIN
     Indication: Neuralgia
     Route: 048
  11. DUOTENS [Concomitant]
     Indication: Hypertension
     Route: 048

REACTIONS (4)
  - Presyncope [Recovered/Resolved]
  - Sopor [Recovered/Resolved]
  - Drug interaction [Recovered/Resolved]
  - Overdose [Recovered/Resolved]

NARRATIVE: CASE EVENT DATE: 20250107
